FAERS Safety Report 16233238 (Version 2)
Quarter: 2019Q3

REPORT INFORMATION
  Report Type: Spontaneous
  Country: US (occurrence: US)
  Receive Date: 20190424
  Receipt Date: 20190719
  Transmission Date: 20191004
  Serious: No
  Sender: FDA-Public Use
  Company Number: US-PFIZER INC-2016329070

PATIENT
  Age: 69 Year
  Sex: Female
  Weight: 122.4 kg

DRUGS (1)
  1. XELJANZ XR [Suspect]
     Active Substance: TOFACITINIB CITRATE
     Indication: RHEUMATOID ARTHRITIS
     Dosage: 11 MG, DAILY
     Route: 048

REACTIONS (4)
  - Bronchitis [Recovered/Resolved]
  - Intervertebral disc protrusion [Unknown]
  - Hypoacusis [Unknown]
  - Osteoporosis [Unknown]

NARRATIVE: CASE EVENT DATE: 201712
